FAERS Safety Report 9158264 (Version 1)
Quarter: 2013Q1

REPORT INFORMATION
  Report Type: Report from Study
  Country: CA (occurrence: CA)
  Receive Date: 20130312
  Receipt Date: 20130312
  Transmission Date: 20140127
  Serious: Yes (Other)
  Sender: FDA-Public Use
  Company Number: CA-JNJFOC-20130300610

PATIENT
  Age: 22 Year
  Sex: Male
  Weight: 53.2 kg

DRUGS (1)
  1. REMICADE [Suspect]
     Indication: CROHN^S DISEASE
     Dosage: 21ST INFUSION TO PRESENT
     Route: 042

REACTIONS (1)
  - Eye operation [Recovered/Resolved]
